FAERS Safety Report 7238067-8 (Version None)
Quarter: 2011Q1

REPORT INFORMATION
  Report Type: 
  Country: None (occurrence: None)
  Receive Date: 20110121
  Receipt Date: 20110117
  Transmission Date: 20110831
  Serious: Yes (Death)
  Sender: FDA-Public Use
  Company Number: B0691271A

PATIENT
  Sex: Male

DRUGS (7)
  1. ARIXTRA [Suspect]
     Indication: THROMBOSIS PROPHYLAXIS
     Dosage: 1.5MG PER DAY
     Route: 058
     Dates: start: 20101217, end: 20101223
  2. FOLIAMIN [Concomitant]
     Route: 048
  3. FERO-GRADUMET [Concomitant]
     Dosage: 210MG PER DAY
     Route: 048
  4. MAGMITT [Concomitant]
     Indication: CONSTIPATION
     Dosage: 990MG PER DAY
     Route: 048
  5. PREDONINE [Concomitant]
     Indication: MUSCULOSKELETAL PAIN
     Dosage: 5MG PER DAY
     Route: 048
  6. LENDORMIN [Concomitant]
     Indication: INSOMNIA
     Dosage: .25MG PER DAY
     Route: 048
  7. RHEUMATREX [Concomitant]
     Indication: RHEUMATOID ARTHRITIS
     Route: 048

REACTIONS (2)
  - EXTRADURAL HAEMATOMA [None]
  - DEPRESSED LEVEL OF CONSCIOUSNESS [None]
